FAERS Safety Report 15543234 (Version 1)
Quarter: 2018Q4

REPORT INFORMATION
  Report Type: Spontaneous
  Country: DE (occurrence: DE)
  Receive Date: 20181023
  Receipt Date: 20181023
  Transmission Date: 20190205
  Serious: Yes (Other)
  Sender: FDA-Public Use
  Company Number: DE-JNJFOC-20181024290

PATIENT

DRUGS (3)
  1. TEMOZOLOMIDE. [Suspect]
     Active Substance: TEMOZOLOMIDE
     Indication: OSTEOSARCOMA RECURRENT
     Dosage: GIVEN ON DAY 1-5 DURING FIRST CYCLE
     Route: 065
  2. YONDELIS [Suspect]
     Active Substance: TRABECTEDIN
     Indication: OSTEOSARCOMA RECURRENT
     Dosage: PER 3 HOURS ON DAY 8
     Route: 042
  3. OLAPARIB. [Suspect]
     Active Substance: OLAPARIB
     Indication: OSTEOSARCOMA RECURRENT
     Dosage: 2 CYCLES; DAYS 1-7
     Route: 065

REACTIONS (5)
  - Off label use [Unknown]
  - Product use issue [Unknown]
  - Aplasia [Unknown]
  - Nausea [Unknown]
  - Product use in unapproved indication [Unknown]
